FAERS Safety Report 4363979-2 (Version None)
Quarter: 2004Q2

REPORT INFORMATION
  Report Type: 
  Country: None (occurrence: None)
  Receive Date: 20040519
  Receipt Date: 20040506
  Transmission Date: 20050107
  Serious: Yes (Death, Other)
  Sender: FDA-Public Use
  Company Number: 2004210216JP

PATIENT
  Age: 74 Year
  Sex: Male
  Weight: 55 kg

DRUGS (10)
  1. AZULFIDINE EN-TABS [Suspect]
     Indication: MUSCULOSKELETAL PAIN
     Dosage: 1000MG/DAY, ORAL; SEE IMAGE
     Route: 048
     Dates: start: 20040406, end: 20040414
  2. AZULFIDINE EN-TABS [Suspect]
     Indication: MUSCULOSKELETAL PAIN
     Dosage: 1000MG/DAY, ORAL; SEE IMAGE
     Route: 048
     Dates: start: 20040219
  3. PREDONINE [Concomitant]
  4. LOXONIN (LOXOPROFEN SODIUM) [Concomitant]
  5. ASPIRIN [Concomitant]
  6. TRICHLORMETHIAZIDE [Concomitant]
  7. ALLOZYM [Concomitant]
  8. APLACE (TROXIPIDE) [Concomitant]
  9. DEPAS (ETIZOLAM) [Concomitant]
  10. MECOBALAMIN [Concomitant]

REACTIONS (2)
  - HAEMOPTYSIS [None]
  - INTERSTITIAL LUNG DISEASE [None]
